FAERS Safety Report 17450430 (Version 1)
Quarter: 2020Q1

REPORT INFORMATION
  Report Type: Spontaneous
  Country: US (occurrence: US)
  Receive Date: 20200206
  Receipt Date: 20200206
  Transmission Date: 20200409
  Serious: Yes (Life-Threatening, Hospitalization, Disabling, Other)
  Sender: FDA-Public Use
  Company Number: None

PATIENT
  Age: 31 Year
  Sex: Female
  Weight: 101.6 kg

DRUGS (15)
  1. FLUCANAZOLE [Suspect]
     Active Substance: FLUCONAZOLE
  2. ZITHROMAX [Suspect]
     Active Substance: AZITHROMYCIN DIHYDRATE
  3. ZADITOR [Suspect]
     Active Substance: KETOTIFEN FUMARATE
  4. HYDROCORTISONE. [Suspect]
     Active Substance: HYDROCORTISONE
  5. HYDROCHLOROTHIAZIDE. [Suspect]
     Active Substance: HYDROCHLOROTHIAZIDE
  6. LORATADINE. [Concomitant]
     Active Substance: LORATADINE
  7. NYSTATIN. [Concomitant]
     Active Substance: NYSTATIN
  8. HYDROXYZINE [Suspect]
     Active Substance: HYDROXYZINE HYDROCHLORIDE
  9. DAPSONE. [Suspect]
     Active Substance: DAPSONE
  10. FLUCONAZOLE. [Concomitant]
     Active Substance: FLUCONAZOLE
  11. GABAPENTIN. [Suspect]
     Active Substance: GABAPENTIN
     Indication: PRODUCT USED FOR UNKNOWN INDICATION
  12. SULFAMETHOXAZOLE AND TRIMETHOPRIM [Suspect]
     Active Substance: SULFAMETHOXAZOLE\TRIMETHOPRIM
  13. METFORMIN [Suspect]
     Active Substance: METFORMIN HYDROCHLORIDE
  14. ATORVASTATIN [Suspect]
     Active Substance: ATORVASTATIN
  15. BIKTARVY [Suspect]
     Active Substance: BICTEGRAVIR SODIUM\EMTRICITABINE\TENOFOVIR ALAFENAMIDE FUMARATE

REACTIONS (4)
  - Rash [None]
  - Lip swelling [None]
  - Stevens-Johnson syndrome [None]
  - Skin discolouration [None]

NARRATIVE: CASE EVENT DATE: 20190712
